FAERS Safety Report 6640071-5 (Version None)
Quarter: 2010Q1

REPORT INFORMATION
  Report Type: 
  Country: None (occurrence: None)
  Receive Date: 20100315
  Receipt Date: 20100303
  Transmission Date: 20100710
  Serious: Yes (Other)
  Sender: FDA-Public Use
  Company Number: 2010SP013270

PATIENT
  Age: 6 Year
  Sex: Female

DRUGS (3)
  1. CHLORPHENIRAMINE MALEATE [Suspect]
     Indication: SEDATION
     Dosage: PO
     Route: 048
  2. TRICLOFOS SODIUM [Concomitant]
  3. DIAZEPAM [Concomitant]

REACTIONS (2)
  - APNOEA [None]
  - SOMNOLENCE [None]
